FAERS Safety Report 9325860 (Version 1)
Quarter: 2013Q2

REPORT INFORMATION
  Report Type: Spontaneous
  Country: US (occurrence: None)
  Receive Date: 20130603
  Receipt Date: 20130603
  Transmission Date: 20140414
  Serious: Yes (Death)
  Sender: FDA-Public Use
  Company Number: None

PATIENT
  Age: 38 Year
  Sex: 0
  Weight: 90.72 kg

DRUGS (1)
  1. HCG [Suspect]

REACTIONS (4)
  - Emotional disorder [None]
  - Aggression [None]
  - Gun shot wound [None]
  - Intentional self-injury [None]
